FAERS Safety Report 10721064 (Version 6)
Quarter: 2016Q2

REPORT INFORMATION
  Report Type: Spontaneous
  Country: JP (occurrence: JP)
  Receive Date: 20150119
  Receipt Date: 20160510
  Transmission Date: 20160815
  Serious: Yes (Other)
  Sender: FDA-Public Use
  Company Number: JP-BRISTOL-MYERS SQUIBB COMPANY-20723805

PATIENT
  Age: 50 Year
  Sex: Male

DRUGS (39)
  1. CARBOPLATIN. [Suspect]
     Active Substance: CARBOPLATIN
     Indication: SQUAMOUS CELL CARCINOMA OF HEAD AND NECK
     Dosage: 1DF:2.5 AUC.INF
     Route: 041
     Dates: start: 20140115, end: 20140122
  2. CARBOPLATIN. [Suspect]
     Active Substance: CARBOPLATIN
     Dosage: 1 UNK, UNK
     Route: 041
     Dates: start: 20140305, end: 20140312
  3. ERBITUX [Suspect]
     Active Substance: CETUXIMAB
     Dosage: 250 MG, UNK
     Route: 041
     Dates: start: 20140924, end: 20141015
  4. PACLITAXEL. [Suspect]
     Active Substance: PACLITAXEL
     Dosage: 100 MG/L, QWK
     Route: 041
     Dates: start: 20140514, end: 20140521
  5. CARBOPLATIN. [Suspect]
     Active Substance: CARBOPLATIN
     Dosage: 1 UNK, UNK
     Route: 041
     Dates: start: 20140326, end: 20140402
  6. CARBOPLATIN. [Suspect]
     Active Substance: CARBOPLATIN
     Dosage: 1 UNK, UNK
     Route: 041
     Dates: start: 20140416, end: 20140423
  7. ERBITUX [Suspect]
     Active Substance: CETUXIMAB
     Dosage: 250 MG, UNK
     Route: 041
     Dates: start: 20140604, end: 20140625
  8. ERBITUX [Suspect]
     Active Substance: CETUXIMAB
     Dosage: 250 MG, UNK
     Route: 041
     Dates: start: 20150916, end: 20151009
  9. ERBITUX [Suspect]
     Active Substance: CETUXIMAB
     Dosage: 250 MG, UNK
     Route: 041
     Dates: start: 20151019, end: 20151111
  10. ERBITUX [Suspect]
     Active Substance: CETUXIMAB
     Dosage: 250 MG, UNK
     Route: 041
     Dates: start: 20140827, end: 20140917
  11. ERBITUX [Suspect]
     Active Substance: CETUXIMAB
     Dosage: 250 MG, UNK
     Route: 041
     Dates: start: 20150624, end: 20150715
  12. ERBITUX [Suspect]
     Active Substance: CETUXIMAB
     Dosage: 250 MG, UNK
     Route: 041
     Dates: start: 20150722, end: 20150812
  13. GRANISETRON [Suspect]
     Active Substance: GRANISETRON
     Indication: PRODUCT USED FOR UNKNOWN INDICATION
     Route: 065
  14. PACLITAXEL. [Suspect]
     Active Substance: PACLITAXEL
     Dosage: 100 MG/M2, QWK
     Route: 041
     Dates: start: 20140305, end: 20140312
  15. PACLITAXEL. [Suspect]
     Active Substance: PACLITAXEL
     Dosage: 100 MG/M2, QWK
     Route: 041
     Dates: start: 20140416, end: 20140423
  16. ERBITUX [Suspect]
     Active Substance: CETUXIMAB
     Dosage: 250 MG, UNK
     Route: 041
     Dates: start: 20140514, end: 20140528
  17. ERBITUX [Suspect]
     Active Substance: CETUXIMAB
     Dosage: 250 MG, UNK
     Route: 041
     Dates: start: 20150223, end: 20150318
  18. ERBITUX [Suspect]
     Active Substance: CETUXIMAB
     Dosage: 250 MG, UNK
     Route: 041
     Dates: start: 20150422, end: 20150520
  19. ERBITUX [Suspect]
     Active Substance: CETUXIMAB
     Dosage: 250 MG, UNK
     Route: 041
     Dates: start: 20150819, end: 20150909
  20. PACLITAXEL. [Suspect]
     Active Substance: PACLITAXEL
     Dosage: 100 MG/M2, QWK
     Route: 041
     Dates: start: 20140326, end: 20140402
  21. ERBITUX [Suspect]
     Active Substance: CETUXIMAB
     Dosage: 250 MG, UNK
     Route: 041
     Dates: start: 20140702, end: 20140723
  22. ERBITUX [Suspect]
     Active Substance: CETUXIMAB
     Dosage: 250 MG, UNK
     Route: 041
     Dates: start: 20140730, end: 20140820
  23. ERBITUX [Suspect]
     Active Substance: CETUXIMAB
     Dosage: 250 MG, UNK
     Route: 041
     Dates: start: 20141119, end: 20141210
  24. ERBITUX [Suspect]
     Active Substance: CETUXIMAB
     Dosage: 250 MG, UNK
     Route: 041
     Dates: start: 20150527, end: 20150617
  25. ERBITUX [Suspect]
     Active Substance: CETUXIMAB
     Dosage: 250 MG, UNK
     Route: 041
     Dates: start: 20151216, end: 20160106
  26. PACLITAXEL. [Suspect]
     Active Substance: PACLITAXEL
     Indication: SQUAMOUS CELL CARCINOMA OF HEAD AND NECK
     Dosage: 100 MG/M2, QWK
     Route: 041
     Dates: start: 20140115, end: 20140122
  27. CARBOPLATIN. [Suspect]
     Active Substance: CARBOPLATIN
     Dosage: 1 UNK, UNK
     Route: 041
     Dates: start: 20140514, end: 20140521
  28. ERBITUX [Suspect]
     Active Substance: CETUXIMAB
     Dosage: 250 MG, UNK
     Route: 041
     Dates: start: 20140205, end: 20140219
  29. ERBITUX [Suspect]
     Active Substance: CETUXIMAB
     Dosage: 250 MG, UNK
     Route: 041
     Dates: start: 20140326, end: 20140409
  30. ERBITUX [Suspect]
     Active Substance: CETUXIMAB
     Dosage: 250 MG, UNK
     Route: 041
     Dates: start: 20141217, end: 20150114
  31. ERBITUX [Suspect]
     Active Substance: CETUXIMAB
     Dosage: 250 MG, UNK
     Route: 041
     Dates: start: 20160113, end: 20160203
  32. PACLITAXEL. [Suspect]
     Active Substance: PACLITAXEL
     Dosage: 100 MG/M2, QWK
     Route: 041
     Dates: start: 20140205, end: 20140212
  33. CARBOPLATIN. [Suspect]
     Active Substance: CARBOPLATIN
     Dosage: 1 UNK, UNK
     Route: 041
     Dates: start: 20140205, end: 20140212
  34. ERBITUX [Suspect]
     Active Substance: CETUXIMAB
     Indication: SQUAMOUS CELL CARCINOMA OF HEAD AND NECK
     Dosage: 400 MG/M2, QWK
     Route: 041
     Dates: start: 20140115, end: 20140115
  35. ERBITUX [Suspect]
     Active Substance: CETUXIMAB
     Dosage: 250 MG, UNK
     Route: 041
     Dates: start: 20140917, end: 20141112
  36. ERBITUX [Suspect]
     Active Substance: CETUXIMAB
     Dosage: 250 MG, UNK
     Route: 041
     Dates: start: 20151118, end: 20151209
  37. ERBITUX [Suspect]
     Active Substance: CETUXIMAB
     Dosage: 250 MG, UNK
     Route: 041
     Dates: start: 20140122, end: 20140129
  38. ERBITUX [Suspect]
     Active Substance: CETUXIMAB
     Dosage: 250 MG, UNK
     Route: 041
     Dates: start: 20150121, end: 20150213
  39. ERBITUX [Suspect]
     Active Substance: CETUXIMAB
     Dosage: 250 MG, UNK
     Route: 041
     Dates: start: 20150325, end: 20150415

REACTIONS (16)
  - Pneumothorax [Unknown]
  - Hypoalbuminaemia [Unknown]
  - Hyperkalaemia [Unknown]
  - Dysgeusia [Unknown]
  - Dermatitis acneiform [Unknown]
  - Neutrophil count decreased [Unknown]
  - Constipation [Unknown]
  - Mucosal inflammation [Unknown]
  - Pneumonia [Unknown]
  - White blood cell count decreased [Unknown]
  - Dry mouth [Unknown]
  - Blood bilirubin increased [Unknown]
  - Haemoglobin decreased [Unknown]
  - Alopecia [Unknown]
  - Skin reaction [Unknown]
  - Hypertrichosis [Unknown]

NARRATIVE: CASE EVENT DATE: 20140115
